FAERS Safety Report 9513129 (Version 1)
Quarter: 2013Q1

REPORT INFORMATION
  Report Type: Spontaneous
  Country: US (occurrence: None)
  Receive Date: 20130305
  Receipt Date: 20130305
  Transmission Date: 20140127
  Serious: Yes (Hospitalization)
  Sender: FDA-Public Use
  Company Number: 163-21880-12101579

PATIENT
  Age: 77 Year
  Sex: Male
  Weight: 79.38 kg

DRUGS (19)
  1. REVLIMID ?(LENALIDOMIDE) (CAPSULES) [Suspect]
     Indication: PLASMA CELL MYELOMA
     Route: 048
     Dates: start: 201206
  2. ZOLOFT (SERTRALINE HYDROCHLORIDE) [Concomitant]
  3. ZESTRIL (LISINOPRIL) [Concomitant]
  4. VITAMIN B (VITAMIN B) [Concomitant]
  5. ULTRAM (TRAMADOL HYDROCHLORIDE) [Concomitant]
  6. PRAVASTATIN (PRAVASTATIN) [Concomitant]
  7. PLAVIX (CLOPIDOGREL SULFATE) [Concomitant]
  8. NOVOLOG (INSULIN ASPART) [Concomitant]
  9. NEXIUM [Concomitant]
  10. ALPRAZOLAM (ALPROAZOLAM) [Concomitant]
  11. ASA (ACETYLSALICYLIC AICD) [Concomitant]
  12. CALCIUM (CALCIUM) [Concomitant]
  13. COLACE (DOCUSATE SODIUM) [Concomitant]
  14. DEXAMETHASONE (DEXAMETHASONE) [Concomitant]
  15. LANTUS (INSULIN GLARGINE) [Concomitant]
  16. LORCET (VICODIN) [Concomitant]
  17. FLOMAX [Concomitant]
  18. LASIX (FUROSEMIDE) [Concomitant]
  19. LOPRESSOR(METOPROLOL TARTRATE) [Concomitant]

REACTIONS (4)
  - Cerebrovascular accident [None]
  - Clostridial infection [None]
  - Fluid retention [None]
  - Anaemia [None]
